FAERS Safety Report 4587721-5 (Version None)
Quarter: 2005Q1

REPORT INFORMATION
  Report Type: 
  Country: None (occurrence: None)
  Receive Date: 20050125
  Receipt Date: 20040830
  Transmission Date: 20050727
  Serious: No
  Sender: FDA-Public Use
  Company Number: USA030536462

PATIENT
  Age: 74 Year
  Sex: Female
  Weight: 47 kg

DRUGS (7)
  1. FORTEO [Suspect]
     Indication: OSTEOPOROSIS
     Dates: start: 20030417
  2. EVISTA [Suspect]
     Dates: start: 20000101
  3. MIACALCIN [Concomitant]
  4. SYNTHROID [Concomitant]
  5. FAMOTIDINE [Concomitant]
  6. VITAMINS [Concomitant]
  7. GLUCOSAMINE [Concomitant]

REACTIONS (4)
  - FATIGUE [None]
  - FEELING ABNORMAL [None]
  - NEPHROLITHIASIS [None]
  - SOMNOLENCE [None]
